FAERS Safety Report 7451369-5 (Version None)
Quarter: 2011Q2

REPORT INFORMATION
  Report Type: 
  Country: None (occurrence: None)
  Receive Date: 20110502
  Receipt Date: 20110421
  Transmission Date: 20111010
  Serious: Yes (Hospitalization)
  Sender: FDA-Public Use
  Company Number: US-ASTRAZENECA-2011SE22851

PATIENT
  Sex: Male

DRUGS (1)
  1. VIMOVO [Suspect]
     Route: 048
     Dates: start: 20110421

REACTIONS (1)
  - ARRHYTHMIA [None]
